FAERS Safety Report 22628872 (Version 2)
Quarter: 2023Q2

REPORT INFORMATION
  Report Type: Spontaneous
  Country: US (occurrence: US)
  Receive Date: 20230622
  Receipt Date: 20230628
  Transmission Date: 20230722
  Serious: Yes (Hospitalization)
  Sender: FDA-Public Use
  Company Number: US-MELINTA THERAPEUTICS, LLC-US-MLNT-23-00364

PATIENT

DRUGS (3)
  1. KIMYRSA [Suspect]
     Active Substance: ORITAVANCIN DIPHOSPHATE
     Indication: Cellulitis
     Dosage: 1200 MILLIGRAM, QN
     Route: 041
     Dates: start: 20230324, end: 20230324
  2. KIMYRSA [Suspect]
     Active Substance: ORITAVANCIN DIPHOSPHATE
     Dosage: 1200 MILLIGRAM, QN
     Route: 041
     Dates: start: 20230419, end: 20230419
  3. ZYVOX [Concomitant]
     Active Substance: LINEZOLID
     Indication: Cellulitis
     Route: 048

REACTIONS (7)
  - Neck pain [Unknown]
  - Headache [Unknown]
  - Chest pain [Unknown]
  - Nausea [Unknown]
  - Infusion related reaction [Unknown]
  - Incorrect product administration duration [Unknown]
  - Multiple use of single-use product [Unknown]

NARRATIVE: CASE EVENT DATE: 20230419
